FAERS Safety Report 12754251 (Version 1)
Quarter: 2016Q3

REPORT INFORMATION
  Report Type: Spontaneous
  Country: US (occurrence: US)
  Receive Date: 20160916
  Receipt Date: 20160916
  Transmission Date: 20161109
  Serious: No
  Sender: FDA-Public Use
  Company Number: US-PFIZER INC-2016430643

PATIENT

DRUGS (10)
  1. OXYCODONE [Suspect]
     Active Substance: OXYCODONE
     Dosage: UNK
  2. CEFALEXIN [Suspect]
     Active Substance: CEPHALEXIN
     Dosage: UNK
  3. PREDNISONE. [Suspect]
     Active Substance: PREDNISONE
     Dosage: UNK
  4. CIPROFLOXACIN. [Suspect]
     Active Substance: CIPROFLOXACIN
     Dosage: UNK
  5. ERYTHROMYCIN. [Suspect]
     Active Substance: ERYTHROMYCIN
     Dosage: UNK
  6. ONDANSETRON [Suspect]
     Active Substance: ONDANSETRON
     Dosage: UNK
  7. ASPRIN [Suspect]
     Active Substance: ASPIRIN
     Dosage: UNK
  8. MORPHINE SULFATE. [Suspect]
     Active Substance: MORPHINE SULFATE
     Dosage: UNK
  9. IBUPROFEN. [Suspect]
     Active Substance: IBUPROFEN
     Dosage: UNK
  10. CODEINE [Suspect]
     Active Substance: CODEINE
     Dosage: UNK

REACTIONS (1)
  - Drug hypersensitivity [Unknown]
